FAERS Safety Report 4790366-5 (Version None)
Quarter: 2005Q4

REPORT INFORMATION
  Report Type: 
  Country: None (occurrence: None)
  Receive Date: 20051005
  Receipt Date: 20051005
  Transmission Date: 20060501
  Serious: Yes (Life-Threatening, Hospitalization)
  Sender: FDA-Public Use
  Company Number: None

PATIENT
  Age: 90 Year
  Sex: Male

DRUGS (6)
  1. GLIPIZIDE [Suspect]
     Indication: DIABETES MELLITUS NON-INSULIN-DEPENDENT
     Dosage: 10 MG PO QD
     Route: 048
  2. ASPIRIN [Concomitant]
  3. LASIX [Concomitant]
  4. IMDUR [Concomitant]
  5. PROTONIX [Concomitant]
  6. ZOLOFT [Concomitant]

REACTIONS (2)
  - BLOOD GLUCOSE DECREASED [None]
  - INCOHERENT [None]
